FAERS Safety Report 10126638 (Version 2)
Quarter: 2015Q1

REPORT INFORMATION
  Report Type: Other
  Country: US (occurrence: US)
  Receive Date: 20140427
  Receipt Date: 20150212
  Transmission Date: 20150720
  Serious: Yes (Hospitalization, Other)
  Sender: FDA-Public Use
  Company Number: US-GSKPPD-2014GSK028987

PATIENT
  Age: 57 Year
  Sex: Male
  Weight: 261.96 kg

DRUGS (4)
  1. AVANDIA [Suspect]
     Active Substance: ROSIGLITAZONE MALEATE
     Indication: DIABETES MELLITUS
     Dosage: AVANDIA WAS NOT LISTED AMONG THE PATIENTS RECORDS REVIEWED.
     Route: 048
  2. ISOSORBIDE [Concomitant]
     Active Substance: ISOSORBIDE
     Dosage: UNITS UNSPECIFIED
  3. CARTIA-XT [Concomitant]
     Dosage: UNITS UNSPECIFIED
  4. ATENOLOL. [Concomitant]
     Active Substance: ATENOLOL
     Dosage: UNITS UNSPECIFIED

REACTIONS (1)
  - Coronary arterial stent insertion [Recovered/Resolved]

NARRATIVE: CASE EVENT DATE: 20060518
